FAERS Safety Report 7354776-4 (Version None)
Quarter: 2011Q1

REPORT INFORMATION
  Report Type: 
  Country: None (occurrence: None)
  Receive Date: 20110316
  Receipt Date: 20100324
  Transmission Date: 20110831
  Serious: No
  Sender: FDA-Public Use
  Company Number: US-KINGPHARMUSA00001-K201000355

PATIENT
  Sex: Male

DRUGS (1)
  1. ALTACE [Suspect]
     Dosage: 2.5-5MG, UNK
     Route: 048

REACTIONS (2)
  - COUGH [None]
  - OROPHARYNGEAL PAIN [None]
